FAERS Safety Report 20069756 (Version 1)
Quarter: 2021Q4

REPORT INFORMATION
  Report Type: Spontaneous
  Country: US (occurrence: None)
  Receive Date: 20211114
  Receipt Date: 20211114
  Transmission Date: 20220303
  Serious: Yes (Other)
  Sender: FDA-Public Use
  Company Number: None

PATIENT
  Age: 78 Year
  Sex: Female
  Weight: 65.25 kg

DRUGS (1)
  1. QVAR [Suspect]
     Active Substance: BECLOMETHASONE DIPROPIONATE
     Indication: Asthma
     Dates: start: 20210809, end: 20211101

REACTIONS (4)
  - Asthma [None]
  - Manufacturing issue [None]
  - Device malfunction [None]
  - Device malfunction [None]

NARRATIVE: CASE EVENT DATE: 20211101
